FAERS Safety Report 9712095 (Version 2)
Quarter: 2013Q4

REPORT INFORMATION
  Report Type: Spontaneous
  Country: US (occurrence: US)
  Receive Date: 20131126
  Receipt Date: 20131126
  Transmission Date: 20140711
  Serious: No
  Sender: FDA-Public Use
  Company Number: US-BRISTOL-MYERS SQUIBB COMPANY-18844266

PATIENT
  Age: 66 Year
  Sex: Female
  Weight: 77.1 kg

DRUGS (10)
  1. BYDUREON [Suspect]
     Indication: TYPE 2 DIABETES MELLITUS
     Dosage: 2ND DOSE:21APR2013?NO OF DOSES-2
     Route: 058
     Dates: start: 20130414, end: 201304
  2. LANTUS [Concomitant]
  3. RAMIPRIL [Concomitant]
  4. METFORMIN [Concomitant]
  5. SIMVASTATIN [Concomitant]
  6. ATORVASTATIN [Concomitant]
  7. ACTOS [Concomitant]
  8. SYNTHROID [Concomitant]
  9. VENLAFAXINE HCL [Concomitant]
  10. VALPROATE SODIUM [Concomitant]

REACTIONS (6)
  - Injection site erythema [Not Recovered/Not Resolved]
  - Injection site pruritus [Recovered/Resolved]
  - Eructation [Recovered/Resolved]
  - Nausea [Recovered/Resolved]
  - Injection site mass [Not Recovered/Not Resolved]
  - Injection site pain [Not Recovered/Not Resolved]
